FAERS Safety Report 11252626 (Version 1)
Quarter: 2015Q3

REPORT INFORMATION
  Report Type: Report from Study
  Country: FR (occurrence: FR)
  Receive Date: 20150708
  Receipt Date: 20150708
  Transmission Date: 20151125
  Serious: Yes (Hospitalization, Other)
  Sender: FDA-Public Use
  Company Number: FR-GLAXOSMITHKLINE-FR2015GSK097501

PATIENT
  Age: 50 Year
  Sex: Female
  Weight: 88 kg

DRUGS (9)
  1. OMEGA-3-ACID ETHYL ESTERS. [Suspect]
     Active Substance: OMEGA-3-ACID ETHYL ESTERS
     Indication: ISCHAEMIC HEART DISEASE PROPHYLAXIS
     Dosage: UNK
     Dates: start: 20061107
  2. DETENSIEL [Concomitant]
     Active Substance: BISOPROLOL FUMARATE
     Dosage: 10 UNK, UNK
  3. NATISPRAY [Concomitant]
     Active Substance: NITROGLYCERIN
     Dosage: 0.30 UNK, UNK
  4. KARDEGIC [Concomitant]
     Active Substance: ASPIRIN LYSINE
     Dosage: 75 MG, UNK
  5. TRIATEC [Concomitant]
     Active Substance: RAMIPRIL
  6. BIPRETERAX [Concomitant]
     Active Substance: INDAPAMIDE\PERINDOPRIL
  7. TAHOR [Concomitant]
     Active Substance: ATORVASTATIN CALCIUM
     Dosage: 40 MG, UNK
  8. LEVOTHYROX [Concomitant]
     Active Substance: LEVOTHYROXINE
     Dosage: 50 UNK, UNK
  9. TILDIEM [Concomitant]
     Active Substance: DILTIAZEM HYDROCHLORIDE

REACTIONS (2)
  - Acute coronary syndrome [Unknown]
  - Chest pain [Unknown]

NARRATIVE: CASE EVENT DATE: 20101004
